FAERS Safety Report 9389631 (Version 2)
Quarter: 2013Q3

REPORT INFORMATION
  Report Type: Spontaneous
  Country: US (occurrence: US)
  Receive Date: 20130708
  Receipt Date: 20130730
  Transmission Date: 20140515
  Serious: Yes (Hospitalization, Other)
  Sender: FDA-Public Use
  Company Number: US-UCBSA-070792

PATIENT
  Age: 25 Year
  Sex: Female

DRUGS (14)
  1. KEPPRA XR [Suspect]
     Indication: CONVULSION
     Dosage: DOSE: 750 MG BID OR TID
     Dates: end: 20130623
  2. KEPPRA XR [Suspect]
     Indication: CONVULSION
     Dosage: STRENGTH: 750 QID
     Dates: start: 2011
  3. KEPPRA XR [Suspect]
     Indication: CONVULSION
     Dates: start: 2009
  4. ELAVIL [Suspect]
     Dates: end: 2012
  5. TOPOMAX [Suspect]
     Dates: end: 201302
  6. KLONOPIN [Suspect]
  7. SEROQUEL [Concomitant]
     Indication: ANXIETY
     Dates: end: 201302
  8. DEPAKOTE [Concomitant]
  9. LASIX [Concomitant]
  10. PULMICORT [Concomitant]
     Indication: ASTHMA
     Route: 055
  11. NASONEX [Concomitant]
     Indication: RHINITIS ALLERGIC
     Route: 045
  12. ZANTAC [Concomitant]
     Indication: GASTROOESOPHAGEAL REFLUX DISEASE
     Route: 048
  13. SINGULAIR [Concomitant]
     Indication: RHINITIS ALLERGIC
     Route: 048
  14. CETIRIZINE [Concomitant]
     Indication: RHINITIS ALLERGIC
     Route: 048

REACTIONS (11)
  - Status epilepticus [Unknown]
  - Convulsion [Recovered/Resolved]
  - Premature delivery [Unknown]
  - Premature separation of placenta [Unknown]
  - Prolonged labour [Recovered/Resolved]
  - Anxiety [Unknown]
  - Somnolence [Recovered/Resolved]
  - Confusional state [Unknown]
  - Paraesthesia [Unknown]
  - Inappropriate schedule of drug administration [Unknown]
  - Exposure during pregnancy [Recovered/Resolved]
